FAERS Safety Report 19518931 (Version 1)
Quarter: 2021Q3

REPORT INFORMATION
  Report Type: Spontaneous
  Country: IT (occurrence: IT)
  Receive Date: 20210712
  Receipt Date: 20210712
  Transmission Date: 20211014
  Serious: Yes (Other)
  Sender: FDA-Public Use
  Company Number: IT-DRREDDYS-CLI/ITL/21/0137440

PATIENT
  Age: 34 Year
  Sex: Male

DRUGS (5)
  1. GLADIO 100 MG POLVERE PER SOSPENSIONE ORALE [Suspect]
     Active Substance: ACECLOFENAC
     Indication: PAIN
     Dates: start: 20210523, end: 20210523
  2. IBUPROFEN. [Suspect]
     Active Substance: IBUPROFEN
     Indication: PAIN
     Dates: start: 20210423, end: 20210523
  3. AUGMENTIN [Suspect]
     Active Substance: AMOXICILLIN\CLAVULANATE POTASSIUM
     Indication: INFECTION
     Dates: start: 20210523, end: 20210523
  4. NIMESULIDE [Suspect]
     Active Substance: NIMESULIDE
     Indication: PAIN
     Dates: start: 20210523, end: 20210523
  5. OKI 80 MG GRANULATO PER SOLUZIONE ORALE [Suspect]
     Active Substance: KETOPROFEN LYSINE
     Indication: PAIN
     Dates: start: 20210523, end: 20210523

REACTIONS (3)
  - Drug abuse [Recovering/Resolving]
  - Headache [Recovering/Resolving]
  - Agitation [Recovering/Resolving]

NARRATIVE: CASE EVENT DATE: 20210523
